FAERS Safety Report 17519342 (Version 1)
Quarter: 2020Q1

REPORT INFORMATION
  Report Type: Spontaneous
  Country: US (occurrence: US)
  Receive Date: 20200310
  Receipt Date: 20200310
  Transmission Date: 20200409
  Serious: No
  Sender: FDA-Public Use
  Company Number: US-ALLERGAN-1929551US

PATIENT
  Age: 68 Year
  Sex: Female

DRUGS (2)
  1. ESTRACE [Suspect]
     Active Substance: ESTRADIOL
     Indication: VULVOVAGINAL DRYNESS
     Dosage: 1 G, QD
     Route: 065
     Dates: start: 20190425, end: 20190508
  2. ESTRACE [Suspect]
     Active Substance: ESTRADIOL
     Indication: ATROPHIC VULVOVAGINITIS
     Dosage: 1 G, Q WEEK

REACTIONS (5)
  - Product packaging quantity issue [Unknown]
  - Incorrect dose administered [Unknown]
  - Product label issue [Unknown]
  - Product dose omission [Unknown]
  - Syringe issue [Unknown]
